FAERS Safety Report 15879481 (Version 1)
Quarter: 2019Q1

REPORT INFORMATION
  Report Type: Spontaneous
  Country: US (occurrence: US)
  Receive Date: 20190127
  Receipt Date: 20190127
  Transmission Date: 20190417
  Serious: Yes (Other)
  Sender: FDA-Public Use
  Company Number: None

PATIENT
  Age: 38 Year
  Sex: Female
  Weight: 81 kg

DRUGS (1)
  1. CYMBALTA [Suspect]
     Active Substance: DULOXETINE HYDROCHLORIDE
     Indication: FIBROMYALGIA
     Route: 048

REACTIONS (6)
  - Depression [None]
  - Vomiting [None]
  - Feeling abnormal [None]
  - Nausea [None]
  - Pyrexia [None]
  - Vertigo [None]

NARRATIVE: CASE EVENT DATE: 20190127
